FAERS Safety Report 12658697 (Version 1)
Quarter: 2016Q3

REPORT INFORMATION
  Report Type: Spontaneous
  Country: US (occurrence: None)
  Receive Date: 20160816
  Receipt Date: 20160816
  Transmission Date: 20161109
  Serious: Yes (Other)
  Sender: FDA-Public Use
  Company Number: None

PATIENT
  Age: 65 Year
  Sex: Male
  Weight: 117.03 kg

DRUGS (17)
  1. GABAPENTIN. [Concomitant]
     Active Substance: GABAPENTIN
  2. AGGRENOX [Concomitant]
     Active Substance: ASPIRIN\DIPYRIDAMOLE
  3. COENZYME Q10 [Concomitant]
     Active Substance: UBIDECARENONE
  4. ATORVASTATIN CALCIUM. [Suspect]
     Active Substance: ATORVASTATIN CALCIUM
     Indication: BLOOD CHOLESTEROL
     Route: 048
  5. OMEGA 3 FISH OIL [Concomitant]
     Active Substance: FISH OIL\OMEGA-3 FATTY ACIDS
  6. METOPROLOL. [Concomitant]
     Active Substance: METOPROLOL
  7. NITROQUICK [Concomitant]
     Active Substance: NITROGLYCERIN
  8. GENERIC NEXIUM [Concomitant]
     Active Substance: ESOMEPRAZOLE MAGNESIUM
  9. CILOSTAZOL. [Concomitant]
     Active Substance: CILOSTAZOL
  10. TYLENOL [Concomitant]
     Active Substance: ACETAMINOPHEN
  11. PLAVIX [Concomitant]
     Active Substance: CLOPIDOGREL BISULFATE
  12. ZETIA [Concomitant]
     Active Substance: EZETIMIBE
  13. EFFEXOR [Concomitant]
     Active Substance: VENLAFAXINE HYDROCHLORIDE
  14. VICTOZA [Concomitant]
     Active Substance: LIRAGLUTIDE
  15. RANEXA [Concomitant]
     Active Substance: RANOLAZINE
  16. FINASTERIDE. [Concomitant]
     Active Substance: FINASTERIDE
  17. NAMENDA [Concomitant]
     Active Substance: MEMANTINE HYDROCHLORIDE

REACTIONS (2)
  - Memory impairment [None]
  - Cognitive disorder [None]

NARRATIVE: CASE EVENT DATE: 20121119
